FAERS Safety Report 9122642 (Version 1)
Quarter: 2013Q1

REPORT INFORMATION
  Report Type: Spontaneous
  Country: US (occurrence: None)
  Receive Date: 20130130
  Receipt Date: 20130130
  Transmission Date: 20140127
  Serious: Yes (Death)
  Sender: FDA-Public Use
  Company Number: B0859625A

PATIENT
  Age: 57 Year
  Sex: Male

DRUGS (7)
  1. DIAZEPAM [Suspect]
     Dosage: UNK / UNK / ORAL?UNK
     Route: 048
  2. CARVEDILOL [Suspect]
     Dosage: UNK / UNK / ORAL?UNK
     Route: 048
  3. TRAMADOL HYDROCHLORIDE [Suspect]
     Dosage: UNK / UNK / ORAL?UNK
     Route: 048
  4. DILTIAZEM HYDROCHLORIDE (FORMULATION UNKNOWN) (DILTIAZEM HYDROCHLORIDE) [Suspect]
     Dosage: UNK / UNK / ORAL?UNK
     Route: 048
  5. LISINOPRIL (FORMULATION UNKNOWN) (LISINOPRIL) [Suspect]
     Dosage: UNK / UNK / ORAL?UNK
     Route: 048
  6. AMILORIDE [Suspect]
     Dosage: UNK / UNK / ORAL?UNK
     Route: 048
  7. COCAINE [Suspect]
     Dosage: UNK / UNK / ORAL?UNK
     Route: 048

REACTIONS (1)
  - Completed suicide [None]
